FAERS Safety Report 8765443 (Version 1)
Quarter: 2012Q4

REPORT INFORMATION
  Report Type: 
  Country: US (occurrence: US)
  Receive Date: 20120902
  Receipt Date: 20120902
  Transmission Date: 20130627
  Serious: Yes (Other)
  Sender: FDA-Public Use
  Company Number: US-PFIZER INC-2012215222

PATIENT
  Age: 42 Year
  Sex: Female
  Weight: 72.56 kg

DRUGS (1)
  1. PRISTIQ [Suspect]
     Indication: DEPRESSION
     Dosage: UNK, 1x/day
     Route: 048
     Dates: start: 2011, end: 2011

REACTIONS (5)
  - Bipolar disorder [Recovered/Resolved]
  - Abnormal behaviour [Recovered/Resolved]
  - Malaise [Recovered/Resolved]
  - Emotional disorder [Recovered/Resolved]
  - Suspiciousness [Recovered/Resolved]
